FAERS Safety Report 25485621 (Version 1)
Quarter: 2025Q2

REPORT INFORMATION
  Report Type: Spontaneous
  Country: GB (occurrence: GB)
  Receive Date: 20250626
  Receipt Date: 20250626
  Transmission Date: 20250716
  Serious: Yes (Other)
  Sender: RECKITT BENCKISER
  Company Number: GB-INDIVIOR UK LIMITED-INDV-164864-2025

PATIENT

DRUGS (19)
  1. BUPRENORPHINE [Suspect]
     Active Substance: BUPRENORPHINE
     Indication: Dependence
     Dosage: 2 MILLIGRAM, QD(DAY 01-46)
     Route: 060
  2. BUPRENORPHINE [Suspect]
     Active Substance: BUPRENORPHINE
     Dosage: 1.6 MILLIGRAM, QD(DAY 60)
     Route: 065
  3. BUPRENORPHINE [Suspect]
     Active Substance: BUPRENORPHINE
     Dosage: 1.8 MILLIGRAM, QD (DAY 64)
     Route: 065
  4. BUPRENORPHINE [Suspect]
     Active Substance: BUPRENORPHINE
     Dosage: 2.2 MILLIGRAM, QD(DAY 68-82)
     Route: 065
  5. BUPRENORPHINE [Suspect]
     Active Substance: BUPRENORPHINE
     Dosage: 2 MILLIGRAM, QD(DAY 96)
     Route: 065
  6. BUPRENORPHINE [Suspect]
     Active Substance: BUPRENORPHINE
     Dosage: 2.4 MILLIGRAM, QD(DAY 120)
     Route: 065
  7. BUPRENORPHINE [Suspect]
     Active Substance: BUPRENORPHINE
     Dosage: 2.6 MILLIGRAM, QD(DAY 138)
     Route: 065
  8. HERBALS\MITRAGYNINE [Suspect]
     Active Substance: HERBALS\MITRAGYNINE
     Indication: Depressed mood
     Dosage: 7-8 DOSES, QD
     Route: 065
  9. HERBALS\MITRAGYNINE [Suspect]
     Active Substance: HERBALS\MITRAGYNINE
     Indication: Anxiety
     Dosage: 20 GRAM, QD
     Route: 065
  10. HERBALS\MITRAGYNINE [Suspect]
     Active Substance: HERBALS\MITRAGYNINE
     Indication: Obsessive-compulsive disorder
     Dosage: 40 GRAM, QD
     Route: 065
  11. HERBALS\MITRAGYNINE [Suspect]
     Active Substance: HERBALS\MITRAGYNINE
     Dosage: 17.5 GRAM, QWK
     Route: 065
  12. HERBALS\MITRAGYNINE [Suspect]
     Active Substance: HERBALS\MITRAGYNINE
     Dosage: 4 GRAM, QWK
     Route: 065
  13. HERBALS\MITRAGYNINE [Suspect]
     Active Substance: HERBALS\MITRAGYNINE
     Dosage: 5 GRAMS, QD
     Route: 065
  14. HERBALS\MITRAGYNINE [Suspect]
     Active Substance: HERBALS\MITRAGYNINE
     Dosage: 3.3 GRAM, QD
     Route: 065
  15. HERBALS\MITRAGYNINE [Suspect]
     Active Substance: HERBALS\MITRAGYNINE
     Dosage: 3 GRAM, QD(DAY 01)
     Route: 065
  16. HERBALS\MITRAGYNINE [Suspect]
     Active Substance: HERBALS\MITRAGYNINE
     Dosage: 1.15 GRAM, QD(DAY 04)
     Route: 065
  17. HERBALS\MITRAGYNINE [Suspect]
     Active Substance: HERBALS\MITRAGYNINE
     Dosage: 0.45 GRAM, QD(DAY 11)
     Route: 065
  18. HERBALS\MITRAGYNINE [Suspect]
     Active Substance: HERBALS\MITRAGYNINE
     Dosage: 0.08 GRAM, QD (DAY 18)
     Route: 065
  19. HERBALS\MITRAGYNINE [Suspect]
     Active Substance: HERBALS\MITRAGYNINE
     Dosage: 1.8 GRAM, QD (DAY 60 RELAPSED)
     Route: 065

REACTIONS (5)
  - Suicidal ideation [Recovered/Resolved]
  - Off label use [Not Recovered/Not Resolved]
  - Drug withdrawal syndrome [Not Recovered/Not Resolved]
  - Dependence [Recovered/Resolved]
  - Wrong technique in product usage process [Not Recovered/Not Resolved]
